FAERS Safety Report 9421942 (Version 1)
Quarter: 2013Q3

REPORT INFORMATION
  Report Type: Spontaneous
  Country: US (occurrence: US)
  Receive Date: 20130726
  Receipt Date: 20130726
  Transmission Date: 20140515
  Serious: No
  Sender: FDA-Public Use
  Company Number: US-PFIZER INC-2013217770

PATIENT
  Age: 66 Year
  Sex: Female
  Weight: 81.63 kg

DRUGS (2)
  1. NEURONTIN [Suspect]
     Indication: ARTHRALGIA
     Dosage: 400 MG, UNK
  2. CELEBREX [Concomitant]
     Indication: ARTHRITIS
     Dosage: UNK

REACTIONS (7)
  - Off label use [Unknown]
  - Drug ineffective for unapproved indication [Unknown]
  - Menopausal symptoms [Unknown]
  - Hot flush [Unknown]
  - Nervousness [Unknown]
  - Mental disorder [Unknown]
  - Irritability [Unknown]
